FAERS Safety Report 7521485-8 (Version None)
Quarter: 2011Q2

REPORT INFORMATION
  Report Type: 
  Country: None (occurrence: None)
  Receive Date: 20110603
  Receipt Date: 20110523
  Transmission Date: 20111010
  Serious: Yes (Hospitalization)
  Sender: FDA-Public Use
  Company Number: AT-BAYER-201047848GPV

PATIENT
  Age: 69 Year
  Sex: Male
  Weight: 132 kg

DRUGS (14)
  1. NEXAVAR [Suspect]
     Route: 048
  2. CLOTRIMAZOLE [Concomitant]
     Route: 065
     Dates: start: 20100402
  3. LEGALON [Concomitant]
     Dosage: DAILY DOSE 70 MG
     Route: 065
     Dates: start: 20100208
  4. UROSIN [Concomitant]
     Dosage: DAILY DOSE 300 MG
     Route: 065
     Dates: start: 20100208
  5. LEVOFLOXACIN [Concomitant]
     Dosage: DAILY DOSE 500 MG
     Route: 065
     Dates: start: 20100409, end: 20100415
  6. NEUROBION [CYANOCOBALAMIN,PYRIDOXINE HYDROCHLORIDE,THIAMINE DISULFIDE] [Concomitant]
     Dosage: DAILY DOSE 600 MG
     Route: 065
     Dates: start: 20100208
  7. HEPA MERZ [ORNITHINE ASPARTATE] [Concomitant]
     Dosage: DAILY DOSE 9 G
     Route: 065
     Dates: start: 20100208
  8. SYMBICORT [Concomitant]
     Dosage: DAILY DOSE 4 PUFF(S)
     Route: 065
     Dates: start: 20100208
  9. NEXAVAR [Suspect]
     Indication: HEPATIC NEOPLASM MALIGNANT
     Route: 048
     Dates: start: 20100316, end: 20100317
  10. PANTOPRAZOLE SODIUM [Concomitant]
     Dosage: DAILY DOSE 40 MG
     Route: 065
     Dates: start: 20100208
  11. NEURONTIN [Concomitant]
     Dosage: DAILY DOSE 300 MG
     Route: 065
     Dates: start: 20100208
  12. NOVALGIN [Concomitant]
     Dosage: DAILY DOSE 60 GTT
     Route: 065
     Dates: start: 20100402
  13. LASILACTON [Concomitant]
     Dosage: 20/50 MG
     Route: 065
     Dates: start: 20100402
  14. CEFTRIAXON [Concomitant]
     Dosage: DAILY DOSE 6 G
     Route: 065
     Dates: start: 20100402, end: 20100409

REACTIONS (2)
  - SKIN EROSION [None]
  - SKIN HAEMORRHAGE [None]
